FAERS Safety Report 7954659 (Version 2)
Quarter: 2012Q4

REPORT INFORMATION
  Report Type: Report from Study
  Country: IN (occurrence: US)
  Receive Date: 20110523
  Receipt Date: 20120911
  Transmission Date: 20130627
  Serious: Yes (Death, Hospitalization)
  Sender: FDA-Public Use
  Company Number: US-BRISTOL-MYERS SQUIBB COMPANY-15759806

PATIENT
  Age: 67 Year
  Sex: Male

DRUGS (4)
  1. IPILIMUMAB [Suspect]
     Indication: MALIGNANT MELANOMA
     Route: 042
     Dates: start: 20110307, end: 20110418
  2. NORVASC [Concomitant]
     Route: 048
  3. VYTORIN 10/20 [Concomitant]
     Route: 048
  4. ACETYLSALICYLIC ACID [Concomitant]
     Route: 048

REACTIONS (2)
  - Malignant neoplasm progression [Fatal]
  - Syncope [Recovered/Resolved with Sequelae]
